FAERS Safety Report 13877158 (Version 2)
Quarter: 2017Q3

REPORT INFORMATION
  Report Type: Spontaneous
  Country: US (occurrence: US)
  Receive Date: 20170817
  Receipt Date: 20170823
  Transmission Date: 20171127
  Serious: Yes (Other)
  Sender: FDA-Public Use
  Company Number: US-FRESENIUS KABI-FK201706994

PATIENT

DRUGS (2)
  1. NORMAL SALINE [Concomitant]
     Active Substance: SODIUM CHLORIDE
     Indication: MEDICATION DILUTION
     Route: 065
  2. VECURONIUM BROMIDE. [Suspect]
     Active Substance: VECURONIUM BROMIDE
     Indication: ANAESTHESIA PROCEDURE
     Route: 065
     Dates: start: 20170707

REACTIONS (2)
  - Drug ineffective [Unknown]
  - Muscle twitching [Unknown]

NARRATIVE: CASE EVENT DATE: 20170707
